FAERS Safety Report 23451956 (Version 2)
Quarter: 2025Q1

REPORT INFORMATION
  Report Type: Spontaneous
  Country: IT (occurrence: IT)
  Receive Date: 20240129
  Receipt Date: 20250128
  Transmission Date: 20250409
  Serious: Yes (Other)
  Sender: PFIZER
  Company Number: IT-PFIZER INC-202400023485

PATIENT
  Age: 69 Year
  Sex: Female

DRUGS (2)
  1. AXITINIB [Suspect]
     Active Substance: AXITINIB
     Indication: Renal cell carcinoma
     Dosage: 5 MG, 2X/DAY
     Dates: start: 2022
  2. AXITINIB [Suspect]
     Active Substance: AXITINIB
     Dosage: 3 MG, 2X/DAY
     Dates: start: 2022

REACTIONS (1)
  - Hepatotoxicity [Unknown]

NARRATIVE: CASE EVENT DATE: 20220101
